FAERS Safety Report 12739894 (Version 2)
Quarter: 2016Q4

REPORT INFORMATION
  Report Type: Spontaneous
  Country: JP (occurrence: JP)
  Receive Date: 20160913
  Receipt Date: 20161116
  Transmission Date: 20170207
  Serious: Yes (Life-Threatening)
  Sender: FDA-Public Use
  Company Number: JP-CONCORDIA PHARMACEUTICALS INC.-E2B_00007829

PATIENT
  Age: 14 Year
  Sex: Male

DRUGS (26)
  1. MUCOSOLVAN DS FOR PEDIATRIC [Concomitant]
     Indication: LOWER RESPIRATORY TRACT INFECTION
  2. CEFMETAZON [Concomitant]
     Active Substance: CEFMETAZOLE SODIUM
     Indication: INFECTION PROPHYLAXIS
     Dates: start: 20141020, end: 20141020
  3. ZONEGRAN [Suspect]
     Active Substance: ZONISAMIDE
     Dosage: UNKNOWN
     Route: 048
     Dates: start: 20141028
  4. TEGRETOL [Suspect]
     Active Substance: CARBAMAZEPINE
     Indication: INFANTILE SPASMS
     Route: 048
     Dates: end: 20141020
  5. TEGRETOL [Suspect]
     Active Substance: CARBAMAZEPINE
     Dosage: UNKNOWN
     Route: 048
     Dates: start: 20141028
  6. HOKUNALIN TAPE [Concomitant]
     Active Substance: TULOBUTEROL
     Indication: LOWER RESPIRATORY TRACT INFECTION
  7. SEVOFLURANE. [Concomitant]
     Active Substance: SEVOFLURANE
     Indication: MAINTENANCE OF ANAESTHESIA
     Dates: start: 20141020, end: 20141020
  8. SOSEGON [Concomitant]
     Active Substance: PENTAZOCINE
     Indication: POSTOPERATIVE ANALGESIA
     Dates: start: 20141020
  9. MYSTAN [Suspect]
     Active Substance: CLOBAZAM
     Indication: INFANTILE SPASMS
     Route: 048
     Dates: end: 20141020
  10. MYSTAN [Suspect]
     Active Substance: CLOBAZAM
     Dosage: UNKNOWN
     Route: 048
     Dates: start: 20141028
  11. LIORESAL [Suspect]
     Active Substance: BACLOFEN
     Dosage: UNKNOWN
     Dates: start: 20141028
  12. ANHIBA [Concomitant]
     Active Substance: ACETAMINOPHEN
     Indication: MAINTENANCE OF ANAESTHESIA
     Route: 054
     Dates: start: 20141020, end: 20141020
  13. DORMICUM [Concomitant]
     Active Substance: MIDAZOLAM\MIDAZOLAM HYDROCHLORIDE
     Indication: MAINTENANCE OF ANAESTHESIA
     Route: 042
     Dates: start: 20141020, end: 20141020
  14. LIORESAL [Suspect]
     Active Substance: BACLOFEN
     Indication: PARALYSIS
     Route: 048
     Dates: end: 20141020
  15. MUCODYNE DS [Concomitant]
     Indication: LOWER RESPIRATORY TRACT INFECTION
  16. LAXOBERON [Concomitant]
     Active Substance: SODIUM PICOSULFATE
     Indication: BOWEL PREPARATION
     Route: 048
     Dates: start: 20141017, end: 20141019
  17. MAGMITT [Concomitant]
     Active Substance: MAGNESIUM OXIDE
     Indication: CONSTIPATION
     Route: 048
     Dates: end: 20141020
  18. DEPAKENE [Concomitant]
     Active Substance: VALPROIC ACID
     Indication: INFANTILE SPASMS
     Route: 048
     Dates: end: 20141020
  19. BRIDION [Concomitant]
     Active Substance: SUGAMMADEX
     Indication: MAINTENANCE OF ANAESTHESIA
     Route: 042
     Dates: start: 20141020, end: 20141020
  20. ZONEGRAN [Suspect]
     Active Substance: ZONISAMIDE
     Indication: INFANTILE SPASMS
     Route: 048
     Dates: end: 20141020
  21. FENTANYL CITRATE. [Concomitant]
     Active Substance: FENTANYL CITRATE
     Indication: MAINTENANCE OF ANAESTHESIA
     Route: 042
     Dates: start: 20141020, end: 20141020
  22. SULBACILLIN [Concomitant]
     Active Substance: AMPICILLIN SODIUM\SULBACTAM SODIUM
     Indication: INFECTION PROPHYLAXIS
     Dates: start: 20141020
  23. MUCODYNE DS [Concomitant]
     Indication: UPPER RESPIRATORY TRACT INFECTION
     Route: 048
     Dates: end: 20141020
  24. MUCOSOLVAN DS FOR PEDIATRIC [Concomitant]
     Indication: UPPER RESPIRATORY TRACT INFECTION
     Route: 048
     Dates: end: 20141020
  25. HOKUNALIN TAPE [Concomitant]
     Active Substance: TULOBUTEROL
     Indication: UPPER RESPIRATORY TRACT INFECTION
     Route: 048
  26. GASCON [Concomitant]
     Active Substance: DIMETHICONE
     Indication: BOWEL PREPARATION
     Route: 048
     Dates: start: 20141017, end: 20141020

REACTIONS (1)
  - Neuroleptic malignant syndrome [Recovered/Resolved]

NARRATIVE: CASE EVENT DATE: 20141022
